FAERS Safety Report 9030308 (Version 2)
Quarter: 2013Q3

REPORT INFORMATION
  Report Type: Spontaneous
  Country: US (occurrence: US)
  Receive Date: 20130122
  Receipt Date: 20130919
  Transmission Date: 20140515
  Serious: Yes (Death, Hospitalization)
  Sender: FDA-Public Use
  Company Number: US-BRISTOL-MYERS SQUIBB COMPANY-17281098

PATIENT
  Age: 54 Year
  Sex: Female

DRUGS (5)
  1. YERVOY [Suspect]
     Indication: METASTATIC MALIGNANT MELANOMA
     Route: 042
     Dates: start: 20121214
  2. SALINE [Concomitant]
     Dates: start: 20121214
  3. IBUPROFEN [Concomitant]
  4. COLACE [Concomitant]
  5. OXYCODONE [Concomitant]

REACTIONS (5)
  - Cardiac arrest [Fatal]
  - Hepatic enzyme increased [Unknown]
  - Hyperkalaemia [Unknown]
  - Platelet count decreased [Unknown]
  - Blood bilirubin increased [Unknown]
